FAERS Safety Report 17635551 (Version 3)
Quarter: 2020Q2

REPORT INFORMATION
  Report Type: Spontaneous
  Country: IT (occurrence: IT)
  Receive Date: 20200407
  Receipt Date: 20200505
  Transmission Date: 20200713
  Serious: Yes (Other)
  Sender: FDA-Public Use
  Company Number: IT-ALVOGEN-2020-ALVOGEN-108069

PATIENT
  Age: 92 Year
  Sex: Female

DRUGS (9)
  1. DUOTRAV [Concomitant]
     Active Substance: TIMOLOL MALEATE\TRAVOPROST
     Indication: PRODUCT USED FOR UNKNOWN INDICATION
     Dosage: 40 MICROGRAMS/ML + 5 MG/ML EYE DROPS, SOLUTION?TIMOLOL: 40.0UG/ML TRAVOPROST: 5.0MG/ML
  2. LOSARTAN. [Interacting]
     Active Substance: LOSARTAN
     Indication: HYPERTENSION
     Route: 048
  3. LANSOPRAZOLE. [Concomitant]
     Active Substance: LANSOPRAZOLE
     Indication: PRODUCT USED FOR UNKNOWN INDICATION
  4. COUMADIN [Concomitant]
     Active Substance: WARFARIN SODIUM
     Indication: PRODUCT USED FOR UNKNOWN INDICATION
  5. LEVETIRACETAM. [Concomitant]
     Active Substance: LEVETIRACETAM
     Indication: PRODUCT USED FOR UNKNOWN INDICATION
  6. ATENOLOL. [Suspect]
     Active Substance: ATENOLOL
     Indication: TACHYCARDIA
     Route: 048
  7. FUROSEMIDE. [Interacting]
     Active Substance: FUROSEMIDE
     Indication: HEPATIC FAILURE
     Route: 048
  8. FUROSEMIDE/SPIRONOLACTONE [Interacting]
     Active Substance: FUROSEMIDE\SPIRONOLACTONE
     Indication: CARDIAC FAILURE
     Route: 048
  9. TRAZODONE HYDROCHLORIDE. [Concomitant]
     Active Substance: TRAZODONE HYDROCHLORIDE
     Indication: PRODUCT USED FOR UNKNOWN INDICATION

REACTIONS (3)
  - Orthostatic hypotension [Recovering/Resolving]
  - Bradycardia [Recovering/Resolving]
  - Drug interaction [Recovering/Resolving]

NARRATIVE: CASE EVENT DATE: 20200314
